FAERS Safety Report 7743621-0 (Version None)
Quarter: 2011Q3

REPORT INFORMATION
  Report Type: 
  Country: None (occurrence: None)
  Receive Date: 20110909
  Receipt Date: 20110909
  Transmission Date: 20111222
  Serious: Yes (Life-Threatening, Hospitalization)
  Sender: FDA-Public Use
  Company Number: None

PATIENT
  Age: 68 Year
  Sex: Female
  Weight: 69.8539 kg

DRUGS (1)
  1. PRILOSEC [Suspect]
     Indication: ULCER
     Dosage: OVER THE COUNTER DOSE 20.8 MG 1 PER DAY ORAL 2ND WK OF JULY
     Route: 048
     Dates: start: 20110701

REACTIONS (2)
  - WEIGHT DECREASED [None]
  - RENAL FAILURE [None]
